FAERS Safety Report 13030247 (Version 2)
Quarter: 2016Q4

REPORT INFORMATION
  Report Type: Spontaneous
  Country: TR (occurrence: TR)
  Receive Date: 20161215
  Receipt Date: 20161219
  Transmission Date: 20170207
  Serious: Yes (Death, Congenital Anomaly)
  Sender: FDA-Public Use
  Company Number: TR-UNICHEM LABORATORIES LIMITED-UCM201612-000281

PATIENT
  Weight: 1.71 kg

DRUGS (1)
  1. DIVALPROEX SODIUM. [Suspect]
     Active Substance: DIVALPROEX SODIUM

REACTIONS (8)
  - Congenital pulmonary hypertension [Unknown]
  - Gastric volvulus [Unknown]
  - Congenital hiatus hernia [Unknown]
  - Foetal anticonvulsant syndrome [Unknown]
  - Foetal exposure during pregnancy [Unknown]
  - Respiratory failure [Fatal]
  - Ectopic kidney [Unknown]
  - Humerus fracture [Unknown]
